FAERS Safety Report 10022986 (Version 2)
Quarter: 2014Q1

REPORT INFORMATION
  Report Type: Spontaneous
  Country: US (occurrence: US)
  Receive Date: 20140319
  Receipt Date: 20140319
  Transmission Date: 20141002
  Serious: No
  Sender: FDA-Public Use
  Company Number: -SAAVPROD-LEUK-1000332

PATIENT
  Age: 60 Year
  Sex: Female
  Weight: 49.43 kg

DRUGS (7)
  1. SARGRAMOSTIM [Suspect]
     Indication: MALIGNANT MELANOMA
     Dosage: 250 MCG, 14 DAYS ON AND 14 DAYS OFF OF 28 DAYS CYCLE
     Route: 065
     Dates: start: 20121129
  2. SARGRAMOSTIM [Suspect]
     Indication: MALIGNANT MELANOMA
     Dosage: 250 MCG, 14 DAYS ON AND 14 DAYS OFF OF 28 DAYS CYCLE
     Route: 065
     Dates: start: 2013, end: 201302
  3. SARGRAMOSTIM [Suspect]
     Indication: MALIGNANT MELANOMA
     Dosage: 250 MCG, 14 DAYS ON AND 14 DAYS OFF OF 28 DAYS CYCLE
     Route: 065
     Dates: start: 20130220
  4. BUSPIRONE HYDROCHLORIDE [Concomitant]
     Indication: PRODUCT USED FOR UNKNOWN INDICATION
     Dosage: UNK
     Route: 065
  5. TRAZODONE [Concomitant]
     Indication: PRODUCT USED FOR UNKNOWN INDICATION
     Dosage: UNK
     Route: 065
  6. METHOCARBAMOL [Concomitant]
     Indication: PRODUCT USED FOR UNKNOWN INDICATION
     Dosage: UNK
     Route: 065
  7. CALCIUM [Concomitant]
     Indication: PRODUCT USED FOR UNKNOWN INDICATION
     Dosage: UNK
     Route: 065

REACTIONS (16)
  - Discomfort [Recovered/Resolved]
  - Discomfort [Recovered/Resolved]
  - Inappropriate schedule of drug administration [Unknown]
  - Palpitations [Recovered/Resolved]
  - Palpitations [Recovered/Resolved]
  - Erythema [Recovered/Resolved]
  - Injection site pruritus [Unknown]
  - Injection site pain [Unknown]
  - Erythema [Recovered/Resolved]
  - Pruritus generalised [Recovered/Resolved]
  - Heart rate increased [Recovered/Resolved]
  - Heart rate increased [Recovered/Resolved]
  - Headache [Recovered/Resolved]
  - Headache [Recovered/Resolved]
  - Poor quality sleep [Unknown]
  - Fatigue [Recovered/Resolved]
